FAERS Safety Report 22234069 (Version 4)
Quarter: 2025Q3

REPORT INFORMATION
  Report Type: Spontaneous
  Country: US (occurrence: US)
  Receive Date: 20230420
  Receipt Date: 20250827
  Transmission Date: 20251021
  Serious: No
  Sender: SANOFI AVENTIS
  Company Number: US-SA-SAC20230418000695

PATIENT
  Age: 40 Year
  Sex: Male

DRUGS (2)
  1. ALPROLIX [Suspect]
     Active Substance: EFTRENONACOG ALFA
     Indication: Factor IX deficiency
     Dosage: 4435 U, QW
     Route: 042
     Dates: start: 20211208
  2. ALPROLIX [Suspect]
     Active Substance: EFTRENONACOG ALFA
     Indication: Factor IX deficiency
     Dosage: 4435 U, QW
     Route: 042
     Dates: start: 20211208

REACTIONS (6)
  - Gingival bleeding [Recovered/Resolved]
  - Mouth haemorrhage [Unknown]
  - Tooth loss [Unknown]
  - Poor venous access [Unknown]
  - Haemorrhage [Unknown]
  - Tooth extraction [Unknown]

NARRATIVE: CASE EVENT DATE: 20230718
